FAERS Safety Report 14776108 (Version 2)
Quarter: 2018Q2

REPORT INFORMATION
  Report Type: Not Available
  Country: US (occurrence: US)
  Receive Date: 20180418
  Receipt Date: 20180517
  Transmission Date: 20180711
  Serious: Yes (Hospitalization)
  Sender: FDA-Public Use
  Company Number: US-NEUROCRINE BIOSCIENCES INC.-2018NBI01080

PATIENT
  Age: 64 Year
  Sex: Male

DRUGS (21)
  1. REXULTI [Suspect]
     Active Substance: BREXPIPRAZOLE
     Dates: start: 20180501
  2. FENOFIBRATE. [Concomitant]
     Active Substance: FENOFIBRATE
  3. OMEPRAZOLE. [Concomitant]
     Active Substance: OMEPRAZOLE
  4. COLACE [Concomitant]
     Active Substance: DOCUSATE SODIUM
  5. REXULTI [Suspect]
     Active Substance: BREXPIPRAZOLE
     Indication: SOMNOLENCE
     Dates: start: 20180316, end: 20180401
  6. CLOZAPINE. [Concomitant]
     Active Substance: CLOZAPINE
  7. LACTOSE [Concomitant]
     Active Substance: LACTOSE
  8. MULTIVITAMIN [Concomitant]
     Active Substance: VITAMINS
  9. FINASTERIDE. [Concomitant]
     Active Substance: FINASTERIDE
  10. PROAIR HFA [Concomitant]
     Active Substance: ALBUTEROL SULFATE
  11. MAGNESIUM [Concomitant]
     Active Substance: MAGNESIUM
  12. TYLENOL EXTRA STRENGTH [Concomitant]
     Active Substance: ACETAMINOPHEN
  13. TAMSULOSIN [Concomitant]
     Active Substance: TAMSULOSIN
  14. TRIAMCINOLONE ACETONIDE. [Suspect]
     Active Substance: TRIAMCINOLONE ACETONIDE
     Indication: DRY SKIN
     Dates: end: 20180401
  15. FLUOXETINE [Concomitant]
     Active Substance: FLUOXETINE HYDROCHLORIDE
  16. INGREZZA [Suspect]
     Active Substance: VALBENAZINE
     Route: 048
     Dates: start: 2018
  17. INGREZZA [Suspect]
     Active Substance: VALBENAZINE
     Indication: TARDIVE DYSKINESIA
     Route: 048
     Dates: start: 20180315, end: 20180322
  18. NABUMETONE. [Concomitant]
     Active Substance: NABUMETONE
  19. INGREZZA [Suspect]
     Active Substance: VALBENAZINE
     Route: 048
     Dates: start: 20180323, end: 20180413
  20. INGREZZA [Suspect]
     Active Substance: VALBENAZINE
     Route: 048
     Dates: start: 2018, end: 2018
  21. FLONASE [Concomitant]
     Active Substance: FLUTICASONE PROPIONATE

REACTIONS (4)
  - Peripheral swelling [Recovered/Resolved]
  - Pharyngeal oedema [Recovered/Resolved]
  - Rash [Recovered/Resolved]
  - Dizziness [Recovered/Resolved]

NARRATIVE: CASE EVENT DATE: 201803
